FAERS Safety Report 6965482-X (Version None)
Quarter: 2010Q3

REPORT INFORMATION
  Report Type: 
  Country: None (occurrence: None)
  Receive Date: 20100903
  Receipt Date: 20100826
  Transmission Date: 20110219
  Serious: Yes (Hospitalization)
  Sender: FDA-Public Use
  Company Number: B0672632A

PATIENT
  Sex: Female
  Weight: 76 kg

DRUGS (6)
  1. LAPATINIB [Suspect]
     Dosage: 1250MG PER DAY
     Route: 048
     Dates: start: 20100810
  2. PACLITAXEL [Suspect]
     Dosage: 143.2MG WEEKLY
     Route: 042
     Dates: start: 20100810
  3. IBUPROFEN [Concomitant]
  4. LOPERAMIDE [Concomitant]
  5. RANITIDINE [Concomitant]
  6. CLEMASTIN [Concomitant]

REACTIONS (4)
  - CHILLS [None]
  - DEVICE RELATED INFECTION [None]
  - INJECTION SITE REACTION [None]
  - PAIN [None]
